FAERS Safety Report 11798851 (Version 1)
Quarter: 2015Q4

REPORT INFORMATION
  Report Type: Report from Study
  Country: US (occurrence: US)
  Receive Date: 20151203
  Receipt Date: 20151203
  Transmission Date: 20160305
  Serious: No
  Sender: FDA-Public Use
  Company Number: US-AMGEN-USASL2015115695

PATIENT
  Age: 69 Year
  Sex: Female

DRUGS (1)
  1. REPATHA [Suspect]
     Active Substance: EVOLOCUMAB
     Indication: PRODUCT USED FOR UNKNOWN INDICATION
     Dosage: 140 MG, Q2WK
     Route: 065

REACTIONS (7)
  - Nasal congestion [Unknown]
  - Sinus disorder [Unknown]
  - Cough [Unknown]
  - Oral pain [Unknown]
  - Nasal discharge discolouration [Unknown]
  - Sputum discoloured [Unknown]
  - Ear discomfort [Unknown]
